FAERS Safety Report 5479802-9 (Version None)
Quarter: 2007Q4

REPORT INFORMATION
  Report Type: 
  Country: None (occurrence: None)
  Receive Date: 20071008
  Receipt Date: 20071004
  Transmission Date: 20080405
  Serious: Yes (Hospitalization)
  Sender: FDA-Public Use
  Company Number: US-SHR-US-2007-008206

PATIENT
  Age: 61 Year
  Sex: Female

DRUGS (2)
  1. BETASERON [Suspect]
     Route: 058
     Dates: start: 19940831, end: 19950101
  2. BETASERON [Suspect]
     Route: 058
     Dates: start: 20070101, end: 20070221

REACTIONS (3)
  - ABASIA [None]
  - DIZZINESS [None]
  - MUSCLE SPASMS [None]
